FAERS Safety Report 6495317-3 (Version None)
Quarter: 2009Q4

REPORT INFORMATION
  Report Type: 
  Country: None (occurrence: None)
  Receive Date: 20091214
  Receipt Date: 20090529
  Transmission Date: 20100525
  Serious: No
  Sender: FDA-Public Use
  Company Number: US-BRISTOL-MYERS SQUIBB COMPANY-14643266

PATIENT
  Age: 24 Year
  Sex: Female

DRUGS (2)
  1. ABILIFY [Suspect]
     Indication: BIPOLAR DISORDER
     Dosage: INITIAL 2.5MG,THEN 5MG THEN 2WKS LATER 10MG THEN DOSE REDUCED TO 5MG.
  2. DEPAKOTE [Concomitant]

REACTIONS (1)
  - AKATHISIA [None]
